FAERS Safety Report 8385064-5 (Version None)
Quarter: 2012Q2

REPORT INFORMATION
  Report Type: 
  Country: None (occurrence: None)
  Receive Date: 20120524
  Receipt Date: 20120522
  Transmission Date: 20120825
  Serious: Yes (Other)
  Sender: FDA-Public Use
  Company Number: US-MERCK-1204USA01917

PATIENT
  Age: 66 Year
  Sex: Male

DRUGS (6)
  1. INDERAL [Concomitant]
     Route: 065
  2. LOTREL [Concomitant]
     Route: 065
  3. JANUVIA [Suspect]
     Route: 048
     Dates: start: 20090708, end: 20100908
  4. ASPIRIN [Concomitant]
     Route: 065
  5. JANUMET [Suspect]
     Indication: TYPE 2 DIABETES MELLITUS
     Route: 048
     Dates: start: 20100908, end: 20120412
  6. AMBIEN [Concomitant]
     Route: 065

REACTIONS (1)
  - BLADDER CANCER [None]
